FAERS Safety Report 25286631 (Version 2)
Quarter: 2025Q2

REPORT INFORMATION
  Report Type: Spontaneous
  Country: PT (occurrence: PT)
  Receive Date: 20250509
  Receipt Date: 20250514
  Transmission Date: 20250716
  Serious: Yes (Hospitalization, Other)
  Sender: Haleon PLC
  Company Number: PT-BENE-Lit_PT_20250414_025

PATIENT
  Age: 20 Year
  Sex: Female

DRUGS (3)
  1. IBUPROFEN [Suspect]
     Active Substance: IBUPROFEN
     Indication: Tooth abscess
  2. IBUPROFEN [Suspect]
     Active Substance: IBUPROFEN
     Route: 048
  3. AMOXICILLIN\CLAVULANIC ACID [Suspect]
     Active Substance: AMOXICILLIN\CLAVULANIC ACID
     Indication: Tooth abscess

REACTIONS (10)
  - Stridor [Recovering/Resolving]
  - Cyanosis [Recovering/Resolving]
  - Face oedema [Recovering/Resolving]
  - Laryngeal oedema [Unknown]
  - Tongue oedema [Recovering/Resolving]
  - Anaphylactic reaction [Unknown]
  - Dysphonia [Recovering/Resolving]
  - Condition aggravated [Recovering/Resolving]
  - Drug hypersensitivity [Unknown]
  - Angioedema [Not Recovered/Not Resolved]
